FAERS Safety Report 18005505 (Version 2)
Quarter: 2020Q3

REPORT INFORMATION
  Report Type: Spontaneous
  Country: US (occurrence: US)
  Receive Date: 20200709
  Receipt Date: 20200715
  Transmission Date: 20201103
  Serious: Yes (Hospitalization)
  Sender: FDA-Public Use
  Company Number: US-ACTELION-A-NJ2020-206801

PATIENT
  Age: 1 Year
  Sex: Female

DRUGS (2)
  1. TRACLEER [Suspect]
     Active Substance: BOSENTAN
     Indication: PULMONARY HYPERTENSION
     Dosage: 6.25 MG/ML
  2. TRACLEER [Suspect]
     Active Substance: BOSENTAN
     Dosage: 3.5 ML, BID
     Dates: start: 20200529

REACTIONS (3)
  - Incorrect route of product administration [Unknown]
  - Unevaluable event [Not Recovered/Not Resolved]
  - Tracheal disorder [Unknown]

NARRATIVE: CASE EVENT DATE: 20200630
